FAERS Safety Report 10496721 (Version 3)
Quarter: 2014Q4

REPORT INFORMATION
  Report Type: Report from Study
  Country: AU (occurrence: AU)
  Receive Date: 20141006
  Receipt Date: 20141010
  Transmission Date: 20150528
  Serious: Yes (Hospitalization)
  Sender: FDA-Public Use
  Company Number: AU-ROCHE-1463562

PATIENT
  Age: 61 Year
  Sex: Female

DRUGS (1)
  1. ACTEMRA [Suspect]
     Active Substance: TOCILIZUMAB
     Indication: RHEUMATOID ARTHRITIS
     Route: 042
     Dates: start: 20120417, end: 20141009

REACTIONS (4)
  - Diverticulitis [Not Recovered/Not Resolved]
  - Intestinal perforation [Unknown]
  - Abdominal abscess [Recovering/Resolving]
  - Stoma complication [Unknown]

NARRATIVE: CASE EVENT DATE: 20140911
